FAERS Safety Report 7597617-2 (Version None)
Quarter: 2011Q3

REPORT INFORMATION
  Report Type: 
  Country: None (occurrence: None)
  Receive Date: 20110708
  Receipt Date: 20110630
  Transmission Date: 20111222
  Serious: Yes (Other)
  Sender: FDA-Public Use
  Company Number: ES-ROCHE-787010

PATIENT
  Age: 57 Year
  Sex: Female

DRUGS (1)
  1. ACTEMRA [Suspect]
     Indication: RHEUMATOID ARTHRITIS
     Dosage: 20MG/ML, 1 VIAL 4ML
     Route: 042
     Dates: start: 20110225, end: 20110325

REACTIONS (2)
  - VERTIGO [None]
  - RESPIRATORY TRACT INFECTION [None]
